FAERS Safety Report 26090721 (Version 1)
Quarter: 2025Q4

REPORT INFORMATION
  Report Type: Report from Study
  Country: US (occurrence: US)
  Receive Date: 20251126
  Receipt Date: 20251126
  Transmission Date: 20260118
  Serious: Yes (Other)
  Sender: BIOCON
  Company Number: US-BIOCON-BCN-2025-000348

PATIENT
  Age: 24 Year

DRUGS (1)
  1. TORPENZ [Suspect]
     Active Substance: EVEROLIMUS
     Indication: Tuberous sclerosis complex
     Dosage: TAKE 1 TABLET (7.5 MG) BY MOUTH ONCE DAILY
     Route: 048
     Dates: start: 20241031

REACTIONS (1)
  - Hyponatraemia [Not Recovered/Not Resolved]

NARRATIVE: CASE EVENT DATE: 20251101
